FAERS Safety Report 26123731 (Version 1)
Quarter: 2025Q4

REPORT INFORMATION
  Report Type: Spontaneous
  Country: CA (occurrence: CA)
  Receive Date: 20251205
  Receipt Date: 20251205
  Transmission Date: 20260117
  Serious: Yes (Hospitalization)
  Sender: TOLMAR
  Company Number: CA-Tolmar-TLM-2025-09103

PATIENT
  Sex: Male

DRUGS (3)
  1. ELIGARD [Suspect]
     Active Substance: LEUPROLIDE ACETATE
     Indication: Product used for unknown indication
  2. ELIGARD [Suspect]
     Active Substance: LEUPROLIDE ACETATE
     Indication: Product used for unknown indication
  3. MORPHINE SULFATE [Suspect]
     Active Substance: MORPHINE SULFATE
     Indication: Product used for unknown indication

REACTIONS (7)
  - Abdominal pain lower [Unknown]
  - Gait disturbance [Unknown]
  - Gait inability [Unknown]
  - Nerve block [Unknown]
  - Palpitations [Unknown]
  - Walking aid user [Unknown]
  - Nausea [Unknown]
